FAERS Safety Report 23919660 (Version 1)
Quarter: 2024Q2

REPORT INFORMATION
  Report Type: Spontaneous
  Country: US (occurrence: US)
  Receive Date: 20240530
  Receipt Date: 20240530
  Transmission Date: 20240716
  Serious: No
  Sender: FDA-Public Use
  Company Number: US-MELINTA THERAPEUTICS, LLC-US-MLNT-24-00184

PATIENT

DRUGS (3)
  1. REZZAYO [Suspect]
     Active Substance: REZAFUNGIN
     Indication: Vulvovaginal pruritus
     Dosage: 400 MG
     Route: 042
  2. REZZAYO [Suspect]
     Active Substance: REZAFUNGIN
     Indication: Vulvovaginal burning sensation
     Dosage: 200 MG, ONCE WEEKLY
  3. REZZAYO [Suspect]
     Active Substance: REZAFUNGIN
     Indication: Vulvovaginal candidiasis

REACTIONS (2)
  - Product prescribing issue [Unknown]
  - Drug ineffective for unapproved indication [Unknown]
